FAERS Safety Report 10840720 (Version 1)
Quarter: 2015Q1

REPORT INFORMATION
  Report Type: Spontaneous
  Country: US (occurrence: None)
  Receive Date: 20150218
  Receipt Date: 20150218
  Transmission Date: 20150721
  Serious: Yes (Hospitalization)
  Sender: FDA-Public Use
  Company Number: None

PATIENT
  Age: 56 Year
  Sex: Male
  Weight: 83.92 kg

DRUGS (13)
  1. CLEOCIN GEL [Concomitant]
  2. COMPAZINE [Concomitant]
     Active Substance: PROCHLORPERAZINE MALEATE
  3. CARBOPLATIN. [Suspect]
     Active Substance: CARBOPLATIN
     Indication: SQUAMOUS CELL CARCINOMA
     Dosage: 1.5 AUC IV Q WEEK
     Route: 042
     Dates: start: 20141222, end: 20150209
  4. CETUXIMAB [Suspect]
     Active Substance: CETUXIMAB
  5. PACLITAXEL. [Suspect]
     Active Substance: PACLITAXEL
     Indication: HEAD AND NECK CANCER
     Route: 042
     Dates: start: 20141222, end: 20150209
  6. PACLITAXEL. [Suspect]
     Active Substance: PACLITAXEL
     Indication: SQUAMOUS CELL CARCINOMA
     Route: 042
     Dates: start: 20141222, end: 20150209
  7. ERLOTINIB [Suspect]
     Active Substance: ERLOTINIB
  8. FLONASE [Concomitant]
     Active Substance: FLUTICASONE PROPIONATE
  9. DOXYCYCLINE. [Concomitant]
     Active Substance: DOXYCYCLINE
  10. SALINE NASAL SPRAY [Concomitant]
     Active Substance: SODIUM CHLORIDE
  11. CLARITIN [Concomitant]
     Active Substance: LORATADINE
  12. CARBOPLATIN. [Suspect]
     Active Substance: CARBOPLATIN
     Indication: HEAD AND NECK CANCER
     Dosage: 1.5 AUC IV Q WEEK
     Route: 042
     Dates: start: 20141222, end: 20150209
  13. ZOFRAN [Concomitant]
     Active Substance: ONDANSETRON HYDROCHLORIDE

REACTIONS (3)
  - Acquired syringomyelia [None]
  - Syncope [None]
  - Fall [None]

NARRATIVE: CASE EVENT DATE: 20150212
